FAERS Safety Report 7811553-5 (Version None)
Quarter: 2011Q4

REPORT INFORMATION
  Report Type: 
  Country: None (occurrence: None)
  Receive Date: 20111013
  Receipt Date: 20111006
  Transmission Date: 20120403
  Serious: Yes (Other)
  Sender: FDA-Public Use
  Company Number: DE-PFIZER INC-2011229591

PATIENT
  Age: 34 Year
  Sex: Female
  Weight: 110 kg

DRUGS (5)
  1. LORMETAZEPAM [Suspect]
     Dosage: 20 MG, SINGLE
     Dates: start: 20110917, end: 20110917
  2. CITALOPRAM [Suspect]
     Dosage: 300 MG, SINGLE
     Dates: start: 20110917, end: 20110917
  3. QUETIAPINE [Suspect]
     Dosage: 12 G, SINGLE
     Dates: start: 20110917, end: 20110917
  4. FLUANXOL [Suspect]
     Dosage: 100 MG, SINGLE
     Dates: start: 20110917, end: 20110917
  5. PANTOPRAZOLE SODIUM [Suspect]
     Dosage: 840 MG, SINGLE
     Dates: start: 20110917, end: 20110917

REACTIONS (3)
  - INTENTIONAL OVERDOSE [None]
  - SUICIDE ATTEMPT [None]
  - VOMITING [None]
